FAERS Safety Report 15403078 (Version 1)
Quarter: 2018Q3

REPORT INFORMATION
  Report Type: Spontaneous
  Country: US (occurrence: US)
  Receive Date: 20180918
  Receipt Date: 20180918
  Transmission Date: 20181010
  Serious: No
  Sender: FDA-Public Use
  Company Number: None

PATIENT
  Age: 68 Year
  Sex: Female
  Weight: 67.5 kg

DRUGS (1)
  1. LIVALO [Suspect]
     Active Substance: PITAVASTATIN CALCIUM
     Route: 048
     Dates: start: 20180401, end: 20180801

REACTIONS (3)
  - Hot flush [None]
  - Feeling hot [None]
  - Feeling abnormal [None]

NARRATIVE: CASE EVENT DATE: 20180701
